FAERS Safety Report 18024517 (Version 1)
Quarter: 2020Q3

REPORT INFORMATION
  Report Type: Spontaneous
  Country: US (occurrence: US)
  Receive Date: 20200714
  Receipt Date: 20200714
  Transmission Date: 20201103
  Serious: Yes (Life-Threatening, Hospitalization)
  Sender: FDA-Public Use
  Company Number: None

PATIENT
  Age: 50 Year
  Sex: Male

DRUGS (5)
  1. KRYSTEXXA [Suspect]
     Active Substance: PEGLOTICASE
     Indication: GOUTY TOPHUS
     Dates: start: 20200617, end: 20200701
  2. PREDNISONE. [Concomitant]
     Active Substance: PREDNISONE
  3. COLCRYS [Concomitant]
     Active Substance: COLCHICINE
  4. PROBENECID. [Concomitant]
     Active Substance: PROBENECID
  5. IBUPROFEN. [Concomitant]
     Active Substance: IBUPROFEN

REACTIONS (7)
  - Hypersensitivity [None]
  - Rash macular [None]
  - Infusion related reaction [None]
  - Erythema [None]
  - Pharyngeal swelling [None]
  - Throat tightness [None]
  - Urticaria [None]

NARRATIVE: CASE EVENT DATE: 20200701
